FAERS Safety Report 5184131-7 (Version None)
Quarter: 2006Q4

REPORT INFORMATION
  Report Type: 
  Country: None (occurrence: None)
  Receive Date: 20061220
  Receipt Date: 20060208
  Transmission Date: 20070319
  Serious: No
  Sender: FDA-Public Use
  Company Number: US-GLAXOSMITHKLINE-A0593354A

PATIENT
  Age: 39 Year
  Sex: Female
  Weight: 74.8 kg

DRUGS (5)
  1. NICODERM [Suspect]
     Dosage: 14MG SINGLE DOSE
     Route: 062
     Dates: start: 20060116
  2. NICOTINE [Suspect]
  3. AVONEX [Concomitant]
  4. XANAX [Concomitant]
  5. LEVOXYL [Concomitant]

REACTIONS (2)
  - APPLICATION SITE ERYTHEMA [None]
  - UNDERDOSE [None]
